FAERS Safety Report 7176719-9 (Version None)
Quarter: 2010Q4

REPORT INFORMATION
  Report Type: 
  Country: None (occurrence: None)
  Receive Date: 20101216
  Receipt Date: 20101216
  Transmission Date: 20110411
  Serious: Yes (Other)
  Sender: FDA-Public Use
  Company Number: None

PATIENT
  Age: 59 Year
  Sex: Female
  Weight: 77.1115 kg

DRUGS (1)
  1. VENLAFAXINE [Suspect]
     Dosage: 75 1X PER DAY
     Dates: start: 20101207, end: 20101209

REACTIONS (2)
  - INFLUENZA LIKE ILLNESS [None]
  - MALAISE [None]
